FAERS Safety Report 23433053 (Version 1)
Quarter: 2024Q1

REPORT INFORMATION
  Report Type: Spontaneous
  Country: US (occurrence: None)
  Receive Date: 20240123
  Receipt Date: 20240123
  Transmission Date: 20240410
  Serious: No
  Sender: FDA-Public Use
  Company Number: 2024A015999

PATIENT
  Age: 57 Year

DRUGS (1)
  1. PRILOSEC [Suspect]
     Active Substance: OMEPRAZOLE MAGNESIUM
     Indication: Gastrooesophageal reflux disease
     Dosage: 7 TABLET (I TOOK 7 OF THEM)
     Route: 048
     Dates: start: 20231228, end: 20240103

REACTIONS (8)
  - Hypersensitivity [Recovering/Resolving]
  - Oral mucosal eruption [Recovering/Resolving]
  - Glossitis [Recovering/Resolving]
  - Oral discomfort [Recovering/Resolving]
  - Cheilitis [Recovering/Resolving]
  - Lip erythema [Recovering/Resolving]
  - Headache [Recovered/Resolved]
  - Product use in unapproved indication [Unknown]

NARRATIVE: CASE EVENT DATE: 20231228
